FAERS Safety Report 8155559-8 (Version None)
Quarter: 2012Q1

REPORT INFORMATION
  Report Type: 
  Country: None (occurrence: None)
  Receive Date: 20120215
  Receipt Date: 20120131
  Transmission Date: 20120608
  Serious: Yes (Other)
  Sender: FDA-Public Use
  Company Number: 2011-088

PATIENT
  Age: 75 Year
  Sex: Male
  Weight: 50 kg

DRUGS (7)
  1. LYRICA [Concomitant]
  2. CHEMOTHERAPY DRUG (CHEMOTHERAPY DRUG) [Concomitant]
  3. MORPHINE SULFATE INJ [Suspect]
     Dosage: 0.17 MG, ONCE/HOUR, INTRATHECAL
     Route: 037
  4. XANAX [Concomitant]
  5. PRIALT [Suspect]
     Indication: NEURALGIA
     Dosage: SEE IMAGE
     Route: 037
     Dates: start: 20111201, end: 20111204
  6. PRIALT [Suspect]
     Indication: NEURALGIA
     Dosage: SEE IMAGE
     Route: 037
     Dates: start: 20110211, end: 20110304
  7. MORPHINE SULFATE INJ [Concomitant]

REACTIONS (3)
  - THROMBOCYTOPENIA [None]
  - URINARY TRACT DISORDER [None]
  - URINARY RETENTION [None]
